FAERS Safety Report 21943577 (Version 1)
Quarter: 2023Q1

REPORT INFORMATION
  Report Type: Spontaneous
  Country: US (occurrence: US)
  Receive Date: 20230202
  Receipt Date: 20230202
  Transmission Date: 20230417
  Serious: Yes (Hospitalization, Other)
  Sender: FDA-Public Use
  Company Number: US-RECKITT BENCKISER HEALTHCARE INT LIMITED-RB-083523-2023

PATIENT
  Age: 82 Year
  Sex: Male

DRUGS (3)
  1. DEXTROMETHORPHAN [Suspect]
     Active Substance: DEXTROMETHORPHAN
     Indication: Drug abuse
     Dosage: UNK
     Route: 065
  2. AMLODIPINE [Concomitant]
     Active Substance: AMLODIPINE BESYLATE
     Indication: Product used for unknown indication
     Dosage: 10 MILLIGRAM, QD
     Route: 065
  3. LOSARTAN [Concomitant]
     Active Substance: LOSARTAN
     Indication: Product used for unknown indication
     Dosage: 25 MILLIGRAM, QD
     Route: 065

REACTIONS (9)
  - Hepatocellular injury [Recovering/Resolving]
  - Hepatic steatosis [Recovering/Resolving]
  - Drug-induced liver injury [Recovering/Resolving]
  - Drug abuse [Recovering/Resolving]
  - Ischaemia [Recovering/Resolving]
  - Pancreatic injury [Recovering/Resolving]
  - Jaundice [Recovering/Resolving]
  - Epigastric discomfort [Recovered/Resolved]
  - Abdominal pain [Recovered/Resolved]
